FAERS Safety Report 13970597 (Version 4)
Quarter: 2018Q2

REPORT INFORMATION
  Report Type: Report from Study
  Country: US (occurrence: US)
  Receive Date: 20170914
  Receipt Date: 20180406
  Transmission Date: 20180711
  Serious: Yes (Hospitalization, Disabling, Other)
  Sender: FDA-Public Use
  Company Number: US-MYLANLABS-2017M1056163

PATIENT
  Age: 15 Year
  Sex: Female
  Weight: 82.1 kg

DRUGS (23)
  1. INVESTIGATIONAL DRUG [Suspect]
     Active Substance: INVESTIGATIONAL PRODUCT
     Dosage: 90 MG, BID
     Route: 048
     Dates: start: 20170829
  2. INVESTIGATIONAL DRUG [Suspect]
     Active Substance: INVESTIGATIONAL PRODUCT
     Dosage: 95 MG, BID
     Route: 048
     Dates: start: 20170619, end: 20171220
  3. PEGASPARGASE [Suspect]
     Active Substance: PEGASPARGASE
     Indication: ACUTE LYMPHOCYTIC LEUKAEMIA
     Dosage: 4475 IU, ON DAY 15 AND 93
     Route: 042
     Dates: start: 20170506
  4. INVESTIGATIONAL DRUG [Suspect]
     Active Substance: INVESTIGATIONAL PRODUCT
     Indication: ACUTE LYMPHOCYTIC LEUKAEMIA
     Dosage: 90 MG, BID
     Route: 048
     Dates: start: 20170619, end: 20170726
  5. CYTARABINE. [Suspect]
     Active Substance: CYTARABINE
     Dosage: 144 MG, UNK (DAYS 30-57)
     Route: 042
     Dates: start: 20170619, end: 20171217
  6. INVESTIGATIONAL DRUG [Suspect]
     Active Substance: INVESTIGATIONAL PRODUCT
     Dosage: 95 MG, BID, DAY 1 OF INTERIM MAINTENANCE 2
     Route: 048
     Dates: start: 20180111
  7. PEGASPARGASE [Suspect]
     Active Substance: PEGASPARGASE
     Dosage: 4475 IU, UNK, DAY 2 OF INTERIM MAINTENANCE
     Route: 042
     Dates: start: 20180112
  8. CYCLOPHOSPHAMIDE. [Suspect]
     Active Substance: CYCLOPHOSPHAMIDE
     Indication: ACUTE LYMPHOCYTIC LEUKAEMIA
     Dosage: 1790 MG, ONCE A MONTH
     Route: 042
     Dates: start: 20170719
  9. THIOGUANINE [Suspect]
     Active Substance: THIOGUANINE
     Dosage: UNK (DAYS 29-42 WEEKLY)
     Route: 048
     Dates: start: 20171207
  10. METHOTREXATE. [Suspect]
     Active Substance: METHOTREXATE
     Indication: ACUTE LYMPHOCYTIC LEUKAEMIA
     Dosage: 15 MG, ON DAY 1, 8, 15, 22
     Route: 037
     Dates: start: 20170510
  11. THIOGUANINE [Suspect]
     Active Substance: THIOGUANINE
     Indication: ACUTE LYMPHOCYTIC LEUKAEMIA
     Dosage: 60 MG, UNK
     Route: 048
     Dates: start: 20171207, end: 20171220
  12. MERCAPTOPURINE. [Suspect]
     Active Substance: MERCAPTOPURINE
     Dosage: 100 MG, UNK (5DAYS A WEEK)
     Dates: start: 20170619, end: 20170726
  13. CYTARABINE. [Suspect]
     Active Substance: CYTARABINE
     Dosage: 137.25 MG, QD FOR 4 DAYS
     Route: 042
     Dates: start: 20170829
  14. VINCRISTINE [Suspect]
     Active Substance: VINCRISTINE
     Dosage: 2 MG, UNK, DAY 50 OF INTENSIFICATION
     Dates: start: 20180112
  15. MERCAPTOPURINE. [Suspect]
     Active Substance: MERCAPTOPURINE
     Indication: ACUTE LYMPHOCYTIC LEUKAEMIA
     Dosage: 125 MG, UNK (TWO DAYS IN A WEEK)
     Route: 048
     Dates: start: 20170619, end: 20170726
  16. MERCAPTOPURINE. [Suspect]
     Active Substance: MERCAPTOPURINE
     Dosage: 100 MG, UNK (5 DAYS A WEEK)
     Route: 048
     Dates: start: 20170829
  17. CYTARABINE. [Suspect]
     Active Substance: CYTARABINE
     Indication: ACUTE LYMPHOCYTIC LEUKAEMIA
     Dosage: 137.75 MG, QD FOR 4 DAYS
     Route: 042
     Dates: start: 20170505, end: 20170726
  18. PEGASPARGASE [Suspect]
     Active Substance: PEGASPARGASE
     Dosage: 4475 IU, UNK (DAY 43)
     Route: 042
     Dates: start: 20170506, end: 20171221
  19. VINCRISTINE [Suspect]
     Active Substance: VINCRISTINE
     Indication: ACUTE LYMPHOCYTIC LEUKAEMIA
     Dosage: 2 MG, ON DAY 15, 22, 43, 50
     Route: 042
     Dates: start: 20170503
  20. VINCRISTINE [Suspect]
     Active Substance: VINCRISTINE
     Dosage: 2 MG, UNK (DAY 43)
     Route: 042
     Dates: start: 20170603, end: 20171221
  21. MERCAPTOPURINE. [Suspect]
     Active Substance: MERCAPTOPURINE
     Dosage: 125 MG TWO DAYS IN A WEEK AND 100 MG 5 DAYS IN A WEEK
     Route: 048
     Dates: start: 20170726
  22. MERCAPTOPURINE. [Suspect]
     Active Substance: MERCAPTOPURINE
     Dosage: 125 MG, UNK (2 DAYS A WEEK)
     Route: 048
     Dates: start: 20170829
  23. THIOGUANINE [Suspect]
     Active Substance: THIOGUANINE
     Dosage: 40 MG, QD
     Route: 048
     Dates: start: 20171207, end: 20171220

REACTIONS (6)
  - Encopresis [Recovering/Resolving]
  - Sepsis [Recovered/Resolved]
  - Febrile neutropenia [Recovered/Resolved]
  - Bacterial infection [Recovered/Resolved]
  - Perirectal abscess [Recovering/Resolving]
  - Cellulitis [Recovered/Resolved]

NARRATIVE: CASE EVENT DATE: 20170724
